FAERS Safety Report 11048950 (Version 1)
Quarter: 2015Q2

REPORT INFORMATION
  Report Type: Spontaneous
  Country: DE (occurrence: DE)
  Receive Date: 20150420
  Receipt Date: 20150420
  Transmission Date: 20150821
  Serious: Yes (Other)
  Sender: FDA-Public Use
  Company Number: DE-WATSON-2015-08107

PATIENT
  Sex: Male

DRUGS (1)
  1. IRBESARTAN ACTAVIS [Suspect]
     Active Substance: IRBESARTAN
     Indication: PRODUCT USED FOR UNKNOWN INDICATION
     Dosage: 300 MG, UNKNOWN
     Route: 048

REACTIONS (14)
  - Arthralgia [Unknown]
  - Cough [Unknown]
  - Vomiting [Unknown]
  - Dizziness postural [Unknown]
  - Flushing [Unknown]
  - Myalgia [Unknown]
  - Dizziness [Unknown]
  - Fatigue [Unknown]
  - Hypotension [Unknown]
  - Nausea [Unknown]
  - Heart rate increased [Unknown]
  - Diarrhoea [Unknown]
  - Muscle spasms [Unknown]
  - Renal impairment [Unknown]

NARRATIVE: CASE EVENT DATE: 20140930
